FAERS Safety Report 8766348 (Version 3)
Quarter: 2013Q4

REPORT INFORMATION
  Report Type: Spontaneous
  Country: FR (occurrence: FR)
  Receive Date: 20120904
  Receipt Date: 20131031
  Transmission Date: 20140711
  Serious: Yes (Hospitalization)
  Sender: FDA-Public Use
  Company Number: FR-009507513-1208FRA012580

PATIENT
  Age: 76 Year
  Sex: Male

DRUGS (12)
  1. NORSET [Suspect]
     Indication: PRODUCT USED FOR UNKNOWN INDICATION
     Dosage: 15 MG, QD
     Route: 048
     Dates: start: 20120706
  2. OLANZAPINE MYLAN [Suspect]
     Dosage: 7.5 MG, QD
     Route: 048
     Dates: start: 20081226
  3. VENLAFAXINE ARROW LP [Suspect]
     Dosage: 150 MG, QD
     Route: 048
     Dates: start: 20120706
  4. LAMOTRIGINE ARROW [Suspect]
     Dosage: 150 MG, QD
     Route: 048
     Dates: start: 20120706
  5. IMOVANE [Suspect]
     Dosage: UNK
     Route: 048
     Dates: start: 20090522
  6. LEPTICUR PARK [Suspect]
     Dosage: 5 MG, TID
     Route: 048
     Dates: start: 20090522
  7. GLUCOPHAGE [Suspect]
     Dosage: 1000 MG, BID
     Route: 048
     Dates: start: 20090511
  8. MECIR LP 0,4 MG [Suspect]
     Dosage: 0.4 MG, QD
     Dates: start: 20090522
  9. PLAVIX [Suspect]
     Dosage: 1 DF, QD
     Dates: start: 20090522
  10. SPASFON-LYOC [Suspect]
     Dosage: 80 MG, TID
  11. SERESTA [Suspect]
     Dosage: 50 MG, QD
  12. HEMI-DAONIL [Suspect]
     Dosage: 2.5 MG, QD

REACTIONS (1)
  - Gait disturbance [Recovered/Resolved]
